FAERS Safety Report 9409666 (Version 1)
Quarter: 2013Q3

REPORT INFORMATION
  Report Type: Spontaneous
  Country: US (occurrence: US)
  Receive Date: 20130719
  Receipt Date: 20130719
  Transmission Date: 20140515
  Serious: No
  Sender: FDA-Public Use
  Company Number: US-JNJFOC-20130707489

PATIENT
  Age: 43 Year
  Sex: Male
  Weight: 79.83 kg

DRUGS (3)
  1. INVEGA SUSTENNA [Suspect]
     Indication: BIPOLAR DISORDER
     Route: 030
  2. SEROQUEL [Concomitant]
     Route: 065
  3. COGENTIN [Concomitant]
     Route: 065

REACTIONS (1)
  - Injection site pain [Unknown]
